FAERS Safety Report 10506715 (Version 1)
Quarter: 2014Q4

REPORT INFORMATION
  Report Type: Spontaneous
  Country: DK (occurrence: None)
  Receive Date: 20141007
  Receipt Date: 20141007
  Transmission Date: 20150528
  Serious: Yes (Other)
  Sender: FDA-Public Use
  Company Number: VAL_03470_2014

PATIENT

DRUGS (1)
  1. CALCITRIOL (CALCITRIOL) [Suspect]
     Active Substance: CALCITRIOL
     Indication: CHRONIC KIDNEY DISEASE
     Dosage: FREQUENCY UNSPECIFIED
     Route: 048

REACTIONS (1)
  - Renal impairment [None]
